FAERS Safety Report 5814545-0 (Version None)
Quarter: 2008Q3

REPORT INFORMATION
  Report Type: 
  Country: None (occurrence: None)
  Receive Date: 20080718
  Receipt Date: 20080709
  Transmission Date: 20090109
  Serious: Yes (Hospitalization)
  Sender: FDA-Public Use
  Company Number: JP-NOVOPROD-277396

PATIENT
  Age: 85 Year
  Sex: Female

DRUGS (4)
  1. LEVEMIR [Suspect]
     Indication: LATENT AUTOIMMUNE DIABETES IN ADULTS
     Dosage: 13 U, QD
     Route: 058
     Dates: start: 20080312, end: 20080616
  2. HUMALOG [Concomitant]
     Indication: LATENT AUTOIMMUNE DIABETES IN ADULTS
     Dosage: 32 U, QD
     Route: 058
     Dates: start: 20020101
  3. HUMACART N [Concomitant]
     Indication: LATENT AUTOIMMUNE DIABETES IN ADULTS
     Dosage: 13 U, QD
     Route: 058
     Dates: start: 20020101
  4. HUMACART N [Concomitant]
     Dates: start: 20080616

REACTIONS (2)
  - ANAPHYLACTIC REACTION [None]
  - HEPATIC NEOPLASM MALIGNANT RECURRENT [None]
